FAERS Safety Report 16500845 (Version 1)
Quarter: 2019Q3

REPORT INFORMATION
  Report Type: Spontaneous
  Country: US (occurrence: US)
  Receive Date: 20190628
  Receipt Date: 20190628
  Transmission Date: 20191004
  Serious: Yes (Disabling)
  Sender: FDA-Public Use
  Company Number: None

PATIENT
  Age: 32 Year
  Sex: Female

DRUGS (5)
  1. FLUTICASONE PROPIONATE NASAL SPRAY [Concomitant]
     Active Substance: FLUTICASONE PROPIONATE
  2. BENADRYL [Concomitant]
     Active Substance: DIPHENHYDRAMINE HYDROCHLORIDE
  3. CENTRUM 100 TABLETS MULTIVITAMIN/MULTIMINERAL SUPPLEMENT [Suspect]
     Active Substance: MINERALS\VITAMINS
     Indication: VITAMIN SUPPLEMENTATION
     Dosage: ?          QUANTITY:1 TABLET(S);?
     Route: 048
     Dates: start: 20190617, end: 20190628
  4. OLANZAPINE TABLETS, USP 2.5 MG (NDC 66993-680-30) [Suspect]
     Active Substance: OLANZAPINE
     Indication: PRODUCT USED FOR UNKNOWN INDICATION
     Dosage: ?          QUANTITY:1 TABLET(S);?
     Route: 048
     Dates: start: 20190516
  5. AZELASTINE HCL NASAL SPRAY [Concomitant]
     Active Substance: AZELASTINE HYDROCHLORIDE

REACTIONS (6)
  - Food allergy [None]
  - Product use complaint [None]
  - Lymphadenopathy [None]
  - Abdominal discomfort [None]
  - Dyspnoea [None]
  - Rash [None]

NARRATIVE: CASE EVENT DATE: 20190628
